FAERS Safety Report 7037936-1 (Version None)
Quarter: 2010Q4

REPORT INFORMATION
  Report Type: 
  Country: None (occurrence: None)
  Receive Date: 20101011
  Receipt Date: 20101005
  Transmission Date: 20110411
  Serious: Yes (Death)
  Sender: FDA-Public Use
  Company Number: GB-TEVA-251020ISR

PATIENT
  Age: 43 Year
  Sex: Male

DRUGS (6)
  1. ACYCLOVIR [Suspect]
  2. METRONIDAZOLE [Suspect]
  3. FLUCLOXACILLIN [Suspect]
     Route: 042
  4. GENTAMICIN [Suspect]
  5. PIPERACILLIN [Suspect]
     Indication: SEPSIS
  6. TAZOBACTAM [Suspect]

REACTIONS (1)
  - TREATMENT FAILURE [None]
